FAERS Safety Report 26181425 (Version 1)
Quarter: 2025Q4

REPORT INFORMATION
  Report Type: Spontaneous
  Country: EU (occurrence: EU)
  Receive Date: 20251221
  Receipt Date: 20251221
  Transmission Date: 20260117
  Serious: Yes (Death, Hospitalization)
  Sender: MYLAN
  Company Number: None

PATIENT
  Age: 71 Year
  Sex: Female
  Weight: 70 kg

DRUGS (8)
  1. PACLITAXEL [Suspect]
     Active Substance: PACLITAXEL
     Indication: Pancreatic carcinoma metastatic
     Dosage: 140 MILLIGRAM, CYCLE
     Dates: start: 20241128, end: 20241212
  2. PACLITAXEL [Suspect]
     Active Substance: PACLITAXEL
     Dosage: 140 MILLIGRAM, CYCLE
     Route: 042
     Dates: start: 20241128, end: 20241212
  3. PACLITAXEL [Suspect]
     Active Substance: PACLITAXEL
     Dosage: 140 MILLIGRAM, CYCLE
     Route: 042
     Dates: start: 20241128, end: 20241212
  4. PACLITAXEL [Suspect]
     Active Substance: PACLITAXEL
     Dosage: 140 MILLIGRAM, CYCLE
     Dates: start: 20241128, end: 20241212
  5. GEMCITABINE [Suspect]
     Active Substance: GEMCITABINE
     Indication: Pancreatic carcinoma metastatic
     Dosage: 1770 MILLIGRAM, CYCLE
     Dates: start: 20241128, end: 20241212
  6. GEMCITABINE [Suspect]
     Active Substance: GEMCITABINE
     Dosage: 1770 MILLIGRAM, CYCLE
     Route: 042
     Dates: start: 20241128, end: 20241212
  7. GEMCITABINE [Suspect]
     Active Substance: GEMCITABINE
     Dosage: 1770 MILLIGRAM, CYCLE
     Route: 042
     Dates: start: 20241128, end: 20241212
  8. GEMCITABINE [Suspect]
     Active Substance: GEMCITABINE
     Dosage: 1770 MILLIGRAM, CYCLE
     Dates: start: 20241128, end: 20241212

REACTIONS (1)
  - Anaemia [Fatal]

NARRATIVE: CASE EVENT DATE: 20250104
